FAERS Safety Report 9328839 (Version 1)
Quarter: 2013Q2

REPORT INFORMATION
  Report Type: Spontaneous
  Country: DE (occurrence: DE)
  Receive Date: 20130604
  Receipt Date: 20130604
  Transmission Date: 20140414
  Serious: Yes (Other)
  Sender: FDA-Public Use
  Company Number: DE-BRISTOL-MYERS SQUIBB COMPANY-18888321

PATIENT
  Age: 53 Year
  Sex: Female
  Weight: 78.7 kg

DRUGS (2)
  1. ABATACEPT SUBQ INJECTION 125MG/ML [Suspect]
     Indication: RHEUMATOID ARTHRITIS
     Dosage: 1DF: 125MG/ML
     Route: 058
     Dates: start: 20130113
  2. METHOTREXATE [Suspect]
     Dates: start: 2004, end: 20130408

REACTIONS (1)
  - Liver function test abnormal [Recovered/Resolved]
